FAERS Safety Report 7016668-X (Version None)
Quarter: 2010Q3

REPORT INFORMATION
  Report Type: 
  Country: None (occurrence: None)
  Receive Date: 20100927
  Receipt Date: 20100917
  Transmission Date: 20110219
  Serious: Yes (Hospitalization)
  Sender: FDA-Public Use
  Company Number: FR-ABBOTT-09P-056-0595065-00

PATIENT
  Age: 27 Year
  Sex: Female
  Weight: 43 kg

DRUGS (4)
  1. HUMIRA [Suspect]
     Indication: CROHN'S DISEASE
     Route: 058
     Dates: start: 20090325
  2. CITALOPRAM HYDROBROMIDE [Concomitant]
     Indication: DEPRESSION
     Dates: start: 20090528
  3. AZATHIOPRINE [Concomitant]
     Indication: CROHN'S DISEASE
     Dates: start: 20080801
  4. BUDESONIDE [Concomitant]
     Indication: CROHN'S DISEASE
     Dates: start: 20081201

REACTIONS (2)
  - PELVIC ABSCESS [None]
  - SMALL INTESTINAL OBSTRUCTION [None]
